FAERS Safety Report 7612320-8 (Version None)
Quarter: 2011Q3

REPORT INFORMATION
  Report Type: 
  Country: None (occurrence: None)
  Receive Date: 20110715
  Receipt Date: 20110705
  Transmission Date: 20111222
  Serious: Yes (Other)
  Sender: FDA-Public Use
  Company Number: US-CELGENEUS-163-C5013-11070554

PATIENT
  Sex: Female
  Weight: 83.082 kg

DRUGS (22)
  1. KETOCONAZOLE [Concomitant]
     Dosage: 2 PERCENT
     Route: 061
  2. TRIAMCINOLONE ACETONIDE [Concomitant]
     Dosage: .1 MILLIGRAM
     Route: 061
  3. AMBIEN [Concomitant]
     Dosage: 10 MILLIGRAM
     Route: 048
  4. COLCHICINE [Concomitant]
     Dosage: .6 MILLIGRAM
     Route: 048
  5. MULTI-VITAMINS [Concomitant]
     Dosage: 1 TABLET
     Route: 048
  6. MUPIROCIN [Concomitant]
     Dosage: 2 PERCENT
     Route: 061
  7. PRILOSEC [Concomitant]
     Dosage: 20 MILLIGRAM
     Route: 048
  8. LENALIDOMIDE [Suspect]
     Dosage: 25 MILLIGRAM
     Route: 048
     Dates: start: 20110323
  9. LOVASTATIN [Concomitant]
     Dosage: 20 MILLIGRAM
     Route: 048
  10. DEXAMETHASONE [Suspect]
     Indication: MULTIPLE MYELOMA
     Dosage: 20 MILLIGRAM
     Route: 065
     Dates: start: 20100908
  11. VITAMIN B-12 [Concomitant]
     Dosage: 1
     Route: 048
  12. HYDROCORTISONE [Concomitant]
     Dosage: 2.5 PERCENT
     Route: 061
  13. EMLA [Concomitant]
     Dosage: 2.5-2.5%
     Route: 061
  14. LOVAZA [Concomitant]
     Dosage: 1200 MILLIGRAM
     Route: 048
  15. LORAZEPAM [Concomitant]
     Dosage: 1 MILLIGRAM
     Route: 048
  16. SULAR [Concomitant]
     Dosage: 5 MILLIGRAM
     Route: 048
  17. LENALIDOMIDE [Suspect]
     Indication: MULTIPLE MYELOMA
     Dosage: 25 MILLIGRAM
     Route: 048
     Dates: start: 20100908
  18. ALLOPURINOL [Concomitant]
     Dosage: 100 MILLIGRAM
     Route: 048
  19. CLOBETASOL PROPIONATE [Concomitant]
     Dosage: .05 PERCENT
     Route: 061
  20. DEXAMETHASONE [Suspect]
     Dosage: 20 MILLIGRAM
     Route: 065
     Dates: start: 20110323
  21. BISOPROLOL FUMARATE [Concomitant]
     Dosage: 2.5 MILLIGRAM
     Route: 048
  22. ASPIRIN [Concomitant]
     Dosage: 325 MILLIGRAM
     Route: 048

REACTIONS (1)
  - LENTIGO MALIGNA STAGE UNSPECIFIED [None]
